FAERS Safety Report 6393379-5 (Version None)
Quarter: 2009Q4

REPORT INFORMATION
  Report Type: 
  Country: None (occurrence: None)
  Receive Date: 20091008
  Receipt Date: 20090928
  Transmission Date: 20100525
  Serious: Yes (Other)
  Sender: FDA-Public Use
  Company Number: US-ABBOTT-09P-163-0599916-00

PATIENT
  Sex: Male
  Weight: 78.088 kg

DRUGS (5)
  1. KALETRA [Suspect]
     Indication: HIV INFECTION
     Route: 048
     Dates: start: 20061201, end: 20090701
  2. REYATAZ [Concomitant]
     Indication: HIV INFECTION
     Dates: start: 20090701, end: 20090801
  3. NORVIR [Concomitant]
     Indication: HIV INFECTION
     Dates: start: 20090701, end: 20090801
  4. TRUVADA [Concomitant]
     Indication: HIV INFECTION
     Dates: start: 20090701
  5. ISENTRESS [Concomitant]
     Indication: HIV INFECTION
     Dates: start: 20090801

REACTIONS (3)
  - BLOOD TRIGLYCERIDES INCREASED [None]
  - FOREIGN BODY [None]
  - OESOPHAGITIS [None]
